FAERS Safety Report 10611498 (Version 1)
Quarter: 2014Q4

REPORT INFORMATION
  Report Type: Spontaneous
  Country: US (occurrence: US)
  Receive Date: 20141126
  Receipt Date: 20141126
  Transmission Date: 20150529
  Serious: Yes (Other)
  Sender: FDA-Public Use
  Company Number: US-JNJFOC-20141114013

PATIENT
  Sex: Female
  Weight: 148 kg

DRUGS (4)
  1. XARELTO [Suspect]
     Active Substance: RIVAROXABAN
     Indication: ADVERSE EVENT
     Route: 048
     Dates: start: 20141107
  2. XARELTO [Suspect]
     Active Substance: RIVAROXABAN
     Indication: PULMONARY EMBOLISM
     Route: 048
     Dates: start: 20141107
  3. XARELTO [Suspect]
     Active Substance: RIVAROXABAN
     Indication: ADVERSE EVENT
     Route: 048
     Dates: start: 201312, end: 2014
  4. XARELTO [Suspect]
     Active Substance: RIVAROXABAN
     Indication: PULMONARY EMBOLISM
     Route: 048
     Dates: start: 201312, end: 2014

REACTIONS (3)
  - Treatment noncompliance [Unknown]
  - Drug level below therapeutic [Not Recovered/Not Resolved]
  - Arterial disorder [Unknown]

NARRATIVE: CASE EVENT DATE: 2014
